FAERS Safety Report 7049573-3 (Version None)
Quarter: 2010Q4

REPORT INFORMATION
  Report Type: 
  Country: None (occurrence: None)
  Receive Date: 20101018
  Receipt Date: 20101014
  Transmission Date: 20110411
  Serious: Yes (Hospitalization)
  Sender: FDA-Public Use
  Company Number: US-GILEAD-2010-0032274

PATIENT
  Sex: Female

DRUGS (9)
  1. LETAIRIS [Suspect]
     Indication: PULMONARY ARTERIAL HYPERTENSION
     Route: 048
     Dates: start: 20090420
  2. ASPIRIN [Concomitant]
  3. DYAZIDE [Concomitant]
  4. AMLODIPINE [Concomitant]
  5. BENICAR [Concomitant]
  6. PROCARDIA [Concomitant]
  7. PREDNISONE [Concomitant]
  8. ACTOS [Concomitant]
  9. PLAQUENIL [Concomitant]

REACTIONS (3)
  - CARDIAC FAILURE CONGESTIVE [None]
  - MITRAL VALVE INCOMPETENCE [None]
  - RENAL FAILURE [None]
